FAERS Safety Report 7773695-2 (Version None)
Quarter: 2011Q3

REPORT INFORMATION
  Report Type: 
  Country: None (occurrence: None)
  Receive Date: 20110920
  Receipt Date: 20110906
  Transmission Date: 20111222
  Serious: Yes (Other)
  Sender: FDA-Public Use
  Company Number: 1000023707

PATIENT
  Sex: Female

DRUGS (2)
  1. SAVELLA (MILNACIPRAN HYDROCHLORIDE) (TABLETS) (MILNACIPRAN HYDROCHLORI [Concomitant]
  2. VIIBRYD [Suspect]
     Dates: start: 20110101

REACTIONS (3)
  - NAUSEA [None]
  - ADVERSE EVENT [None]
  - SUICIDAL IDEATION [None]
